FAERS Safety Report 8611913-9 (Version None)
Quarter: 2012Q3

REPORT INFORMATION
  Report Type: 
  Country: None (occurrence: None)
  Receive Date: 20120822
  Receipt Date: 20120817
  Transmission Date: 20120928
  Serious: No
  Sender: FDA-Public Use
  Company Number: US-BAYER-2012-086404

PATIENT
  Age: 36 Year
  Sex: Female

DRUGS (2)
  1. SOLU-MEDROL [Concomitant]
     Dosage: UNK
     Dates: end: 20120815
  2. BETASERON [Suspect]
     Dosage: .3 MG, QOD
     Route: 058
     Dates: start: 20120626

REACTIONS (1)
  - HYPOAESTHESIA [None]
